FAERS Safety Report 9984955 (Version 1)
Quarter: 2014Q1

REPORT INFORMATION
  Report Type: Report from Study
  Country: US (occurrence: US)
  Receive Date: 20140307
  Receipt Date: 20140307
  Transmission Date: 20141002
  Serious: No
  Sender: FDA-Public Use
  Company Number: US-ABBVIE-14P-163-1186293-00

PATIENT
  Age: 62 Year
  Sex: Female
  Weight: 64.47 kg

DRUGS (2)
  1. HUMIRA [Suspect]
     Indication: CROHN^S DISEASE
     Route: 058
     Dates: start: 201305
  2. XANAX [Concomitant]
     Indication: PRODUCT USED FOR UNKNOWN INDICATION

REACTIONS (6)
  - Depression [Unknown]
  - Sinusitis [Unknown]
  - Diarrhoea [Unknown]
  - Abdominal pain [Unknown]
  - Irritability [Unknown]
  - Mood swings [Unknown]
